FAERS Safety Report 17220740 (Version 4)
Quarter: 2021Q3

REPORT INFORMATION
  Report Type: Report from Study
  Country: BR (occurrence: BR)
  Receive Date: 20191231
  Receipt Date: 20210826
  Transmission Date: 20211014
  Serious: Yes (Other)
  Sender: FDA-Public Use
  Company Number: BR-JNJFOC-20191218050

PATIENT
  Age: 68 Year
  Sex: Male

DRUGS (5)
  1. PREDNISONE. [Suspect]
     Active Substance: PREDNISONE
  2. SIMPONI [Suspect]
     Active Substance: GOLIMUMAB
     Indication: PSORIATIC ARTHROPATHY
     Route: 058
     Dates: start: 20191120
  3. ACETAMINOPHEN. [Concomitant]
     Active Substance: ACETAMINOPHEN
  4. ARAVA [Suspect]
     Active Substance: LEFLUNOMIDE
  5. DIPYRONE [Concomitant]
     Active Substance: DIPYRONE

REACTIONS (6)
  - Drug ineffective [Unknown]
  - Psoriatic arthropathy [Not Recovered/Not Resolved]
  - Headache [Unknown]
  - Urinary tract infection bacterial [Recovered/Resolved]
  - Tuberculosis [Unknown]
  - Liver disorder [Unknown]

NARRATIVE: CASE EVENT DATE: 201911
